FAERS Safety Report 18300842 (Version 1)
Quarter: 2020Q3

REPORT INFORMATION
  Report Type: Spontaneous
  Country: US (occurrence: US)
  Receive Date: 20200923
  Receipt Date: 20200923
  Transmission Date: 20201103
  Serious: Yes (Death)
  Sender: FDA-Public Use
  Company Number: None

PATIENT
  Sex: Female

DRUGS (5)
  1. COREG [Concomitant]
     Active Substance: CARVEDILOL
  2. ADCIRCA [Concomitant]
     Active Substance: TADALAFIL
  3. ADCIRCA [Suspect]
     Active Substance: TADALAFIL
     Indication: PULMONARY HYPERTENSION
     Route: 048
     Dates: start: 20150814
  4. LANTUS [Concomitant]
     Active Substance: INSULIN GLARGINE
  5. TRACLEER [Concomitant]
     Active Substance: BOSENTAN

REACTIONS (1)
  - Death [None]
